FAERS Safety Report 12766407 (Version 1)
Quarter: 2016Q3

REPORT INFORMATION
  Report Type: Spontaneous
  Country: None (occurrence: US)
  Receive Date: 20160921
  Receipt Date: 20160921
  Transmission Date: 20161109
  Serious: No
  Sender: FDA-Public Use
  Company Number: None

PATIENT
  Age: 34 Year
  Sex: Female
  Weight: 61.24 kg

DRUGS (1)
  1. NEXPLANON [Suspect]
     Active Substance: ETONOGESTREL
     Dates: start: 20151203, end: 20160919

REACTIONS (5)
  - Weight increased [None]
  - Depression [None]
  - Haemorrhage [None]
  - Libido decreased [None]
  - Asthenia [None]

NARRATIVE: CASE EVENT DATE: 20160919
